FAERS Safety Report 20310049 (Version 1)
Quarter: 2022Q1

REPORT INFORMATION
  Report Type: Spontaneous
  Country: FR (occurrence: FR)
  Receive Date: 20220107
  Receipt Date: 20220107
  Transmission Date: 20220423
  Serious: Yes (Other)
  Sender: FDA-Public Use
  Company Number: FR-ORGANON-O2112FRA002664

PATIENT
  Age: 77 Year
  Sex: Female
  Weight: 71 kg

DRUGS (21)
  1. ZOCOR [Suspect]
     Active Substance: SIMVASTATIN
     Dosage: 1/2 TABLET IN THE EVENING AT 5 PM
     Route: 048
  2. EUTHYROX [Suspect]
     Active Substance: LEVOTHYROXINE SODIUM
     Dosage: 1 DOSAGE FORM, IN THE MORNING (5 HOURS) FASTED
     Route: 048
  3. EUTHYROX [Suspect]
     Active Substance: LEVOTHYROXINE SODIUM
     Dosage: 1/2 TABLET
     Route: 048
  4. EUTHYROX [Suspect]
     Active Substance: LEVOTHYROXINE SODIUM
     Dosage: 1/2 TABLET
  5. LERCANIDIPINE [Suspect]
     Active Substance: LERCANIDIPINE
     Dosage: 1 DOSAGE FORM, IN THE MORNING AROUND 4:30 PM
  6. IRBESARTAN [Suspect]
     Active Substance: IRBESARTAN
     Dosage: 1 DOSAGE FORM, STRENGTH: 150, IN THE MORNING AT 6:00 AM
  7. URAPIDIL [Suspect]
     Active Substance: URAPIDIL
     Dosage: 1 DOSAGE FORM,  IN THE MORNING AND 1 IN THE EVENING
  8. NEBIVOLOL HYDROCHLORIDE [Suspect]
     Active Substance: NEBIVOLOL HYDROCHLORIDE
     Dosage: 1 DOSAGE FORM, IN THE EVENING AT APPROXIMATELY 4:30 PM
  9. IMOVANE [Suspect]
     Active Substance: ZOPICLONE
     Dosage: 1 DOSAGE FORM, IN THE EVENING AT 6 PM
  10. DOLIPRANE [Suspect]
     Active Substance: ACETAMINOPHEN
     Dosage: STRENGTH: 500 CAPSULES, 1 EVERY 4 HOURS
     Route: 048
  11. PHLOROGLUCINOL [Suspect]
     Active Substance: PHLOROGLUCINOL
     Dosage: 6 DOSAGE FORM, PER DAY
  12. CHONDROITIN SULFATE (CHICKEN) [Suspect]
     Active Substance: CHONDROITIN SULFATE (CHICKEN)
     Dosage: 1 DOSAGE FORM, 1 IN THE MORNING AND 1 IN THE EVENING
  13. CARBOMER [Suspect]
     Active Substance: CARBOMER
     Indication: Eye disorder
     Dosage: IN THE EVENING
  14. CARBOMER [Suspect]
     Active Substance: CARBOMER
     Indication: Dry eye
  15. HYPROMELLOSES [Suspect]
     Active Substance: HYPROMELLOSES
     Indication: Dry eye
     Dosage: REFRESH SEVERAL TIMES A DAY
  16. HYPROMELLOSES [Suspect]
     Active Substance: HYPROMELLOSES
     Indication: Eye disorder
  17. CARBOMER [Suspect]
     Active Substance: CARBOMER
     Indication: Dry eye
     Dosage: REFRESH SEVERAL TIMES A DAY
  18. CARBOMER [Suspect]
     Active Substance: CARBOMER
     Indication: Eye disorder
  19. BORIC ACID\SODIUM BORATE [Suspect]
     Active Substance: BORIC ACID\SODIUM BORATE
     Indication: Eye irrigation
     Dosage: UNK
  20. REFRESH TEARS [Suspect]
     Active Substance: CARBOXYMETHYLCELLULOSE SODIUM
     Indication: Dry eye
     Dosage: SEVERAL TIMES A DAY
  21. REFRESH TEARS [Suspect]
     Active Substance: CARBOXYMETHYLCELLULOSE SODIUM
     Indication: Eye disorder

REACTIONS (30)
  - Thyroid operation [Unknown]
  - Renal stone removal [Unknown]
  - Renal surgery [Unknown]
  - Ovarian cystectomy [Unknown]
  - Fibromyalgia [Unknown]
  - Hypoacusis [Unknown]
  - Visual impairment [Unknown]
  - Diverticulum [Unknown]
  - Hiatus hernia [Unknown]
  - Hypertension [Unknown]
  - Osteoarthritis [Unknown]
  - Pain [Unknown]
  - Vitreous floaters [Unknown]
  - Renal cyst [Unknown]
  - Otosclerosis [Unknown]
  - Blepharospasm [Unknown]
  - Loss of personal independence in daily activities [Unknown]
  - Lower respiratory tract congestion [Unknown]
  - Wheezing [Unknown]
  - Cough [Unknown]
  - Throat irritation [Unknown]
  - Vasomotor rhinitis [Unknown]
  - Thalassaemia alpha [Unknown]
  - Weight increased [Unknown]
  - Irritable bowel syndrome [Unknown]
  - Musculoskeletal chest pain [Unknown]
  - Dyspnoea [Unknown]
  - Dyspepsia [Unknown]
  - Abdominal pain [Unknown]
  - Constipation [Unknown]

NARRATIVE: CASE EVENT DATE: 20180324
